FAERS Safety Report 7093550-3 (Version None)
Quarter: 2010Q4

REPORT INFORMATION
  Report Type: 
  Country: None (occurrence: None)
  Receive Date: 20101110
  Receipt Date: 20101029
  Transmission Date: 20110411
  Serious: Yes (Hospitalization, Other)
  Sender: FDA-Public Use
  Company Number: US-ROCHE-432383

PATIENT
  Sex: Female
  Weight: 86.2 kg

DRUGS (6)
  1. ACCUTANE [Suspect]
     Route: 048
     Dates: start: 19870101, end: 19870101
  2. ACCUTANE [Suspect]
     Dosage: 40 MG DAILY, THEN ADD 40 MG MORE EVERY OTHER DAY.
     Route: 048
     Dates: start: 19940713, end: 19940823
  3. ACCUTANE [Suspect]
     Route: 048
     Dates: start: 19940824, end: 19941228
  4. ACCUTANE [Suspect]
     Route: 048
     Dates: start: 20000101, end: 20000201
  5. ACCUTANE [Suspect]
     Route: 048
     Dates: start: 20000217, end: 20000601
  6. DEMULEN 1/35-21 [Concomitant]
     Dates: start: 19930513

REACTIONS (32)
  - ACQUIRED OESOPHAGEAL WEB [None]
  - ARTHRALGIA [None]
  - BACK PAIN [None]
  - CERVICITIS [None]
  - CERVICOBRACHIAL SYNDROME [None]
  - CHAPPED LIPS [None]
  - CHOLELITHIASIS [None]
  - COLITIS [None]
  - COLITIS ULCERATIVE [None]
  - DEAFNESS [None]
  - DERMATITIS CONTACT [None]
  - DIARRHOEA [None]
  - DRY EYE [None]
  - DRY SKIN [None]
  - DYSMENORRHOEA [None]
  - ECZEMA NUMMULAR [None]
  - EMOTIONAL DISTRESS [None]
  - ENDOMETRIAL HYPERPLASIA [None]
  - EPISTAXIS [None]
  - EYELID OEDEMA [None]
  - GASTROOESOPHAGEAL REFLUX DISEASE [None]
  - HAEMORRHOIDS [None]
  - HEADACHE [None]
  - INFLAMMATORY BOWEL DISEASE [None]
  - INTERVERTEBRAL DISC DEGENERATION [None]
  - MENORRHAGIA [None]
  - NASAL CONGESTION [None]
  - NASAL DRYNESS [None]
  - OROPHARYNGEAL PAIN [None]
  - PROCTITIS [None]
  - RADICULITIS BRACHIAL [None]
  - ROSACEA [None]
